FAERS Safety Report 17922533 (Version 3)
Quarter: 2020Q4

REPORT INFORMATION
  Report Type: Spontaneous
  Country: US (occurrence: US)
  Receive Date: 20200622
  Receipt Date: 20201022
  Transmission Date: 20210113
  Serious: No
  Sender: FDA-Public Use
  Company Number: US-PFIZER INC-2020239500

PATIENT
  Age: 75 Year
  Sex: Female
  Weight: 66.22 kg

DRUGS (2)
  1. IBRANCE [Suspect]
     Active Substance: PALBOCICLIB
     Indication: BREAST CANCER METASTATIC
     Dosage: 75 MG, CYCLIC, ONCE A DAY FOR 3 WEEKS, THEN OFF 2 WEEKS
  2. IBRANCE [Suspect]
     Active Substance: PALBOCICLIB
     Dosage: 125 MG (SPLIT TABLET IN HALF FOR 21 DAYS ON AND 7 DAYS OFF)
     Dates: start: 20201020

REACTIONS (2)
  - Product prescribing error [Unknown]
  - White blood cell count decreased [Unknown]

NARRATIVE: CASE EVENT DATE: 20201020
